FAERS Safety Report 8770647 (Version 1)
Quarter: 2012Q4

REPORT INFORMATION
  Report Type: 
  Country: US (occurrence: US)
  Receive Date: 20120906
  Receipt Date: 20120906
  Transmission Date: 20130627
  Serious: Yes (Other)
  Sender: FDA-Public Use
  Company Number: US-MYLANLABS-2012S1017709

PATIENT
  Age: 9 Day
  Sex: Female

DRUGS (5)
  1. FLECAINIDE [Suspect]
     Indication: ATRIAL TACHYCARDIA
     Dosage: 80 mg/m2/d
     Route: 048
  2. FLECAINIDE [Interacting]
     Indication: ATRIAL TACHYCARDIA
     Dosage: 100 mg/m2/d
     Route: 048
  3. AMIODARONE [Interacting]
     Indication: ATRIAL TACHYCARDIA
     Dosage: bolus; then IV infusion at 15 mg/kg/d
     Route: 065
  4. AMIODARONE [Interacting]
     Indication: ATRIAL TACHYCARDIA
     Dosage: 15 mg/kg/d
     Route: 041
  5. PROPRANOLOL [Concomitant]
     Indication: ATRIAL TACHYCARDIA
     Dosage: 4 mg/kg/d
     Route: 048

REACTIONS (4)
  - Drug interaction [Unknown]
  - Bundle branch block right [Unknown]
  - Bundle branch block right [Unknown]
  - Toxicity to various agents [Unknown]
